FAERS Safety Report 24179084 (Version 1)
Quarter: 2024Q3

REPORT INFORMATION
  Report Type: Spontaneous
  Country: GB (occurrence: GB)
  Receive Date: 20240806
  Receipt Date: 20240806
  Transmission Date: 20241016
  Serious: Yes (Hospitalization, Other)
  Sender: ACCORD
  Company Number: None

PATIENT
  Age: 73 Year
  Sex: Male
  Weight: 99 kg

DRUGS (2)
  1. RAMIPRIL [Suspect]
     Active Substance: RAMIPRIL
     Indication: Hypertension
     Dates: start: 20150303, end: 20240414
  2. METANIUM [Concomitant]
     Dosage: APPLY TO THE AF
     Dates: start: 20240515

REACTIONS (4)
  - Campylobacter gastroenteritis [Unknown]
  - Acute kidney injury [Not Recovered/Not Resolved]
  - Pneumonia [Unknown]
  - Dehydration [Unknown]

NARRATIVE: CASE EVENT DATE: 20240414
